FAERS Safety Report 23915593 (Version 2)
Quarter: 2024Q2

REPORT INFORMATION
  Report Type: Spontaneous
  Country: US (occurrence: US)
  Receive Date: 20240529
  Receipt Date: 20240618
  Transmission Date: 20240716
  Serious: No
  Sender: FDA-Public Use
  Company Number: US-Calliditas-2024CAL00832

PATIENT
  Age: 62 Year
  Sex: Male

DRUGS (5)
  1. TARPEYO [Suspect]
     Active Substance: BUDESONIDE
     Indication: IgA nephropathy
     Route: 048
     Dates: start: 20230920
  2. ATORVASTATIN [Concomitant]
     Active Substance: ATORVASTATIN
  3. TELMISARTAN [Concomitant]
     Active Substance: TELMISARTAN
  4. FOLIC ACID [Concomitant]
     Active Substance: FOLIC ACID
  5. ALLOPURINOL [Concomitant]
     Active Substance: ALLOPURINOL

REACTIONS (1)
  - Drug ineffective [Not Recovered/Not Resolved]

NARRATIVE: CASE EVENT DATE: 20240502
